FAERS Safety Report 21431979 (Version 2)
Quarter: 2022Q4

REPORT INFORMATION
  Report Type: Spontaneous
  Country: JP (occurrence: JP)
  Receive Date: 20221009
  Receipt Date: 20221027
  Transmission Date: 20230113
  Serious: Yes (Life-Threatening, Hospitalization)
  Sender: FDA-Public Use
  Company Number: JP-TEVA-2022-JP-2082359

PATIENT
  Age: 58 Year
  Sex: Male

DRUGS (9)
  1. VANCOMYCIN [Suspect]
     Active Substance: VANCOMYCIN
     Indication: Antibiotic prophylaxis
     Route: 041
  2. EPHEDRINE [Suspect]
     Active Substance: EPHEDRINE
     Indication: Vancomycin infusion reaction
     Route: 065
  3. EPHEDRINE [Suspect]
     Active Substance: EPHEDRINE
     Indication: Hypotension
  4. PHENYLEPHRINE [Suspect]
     Active Substance: PHENYLEPHRINE HYDROCHLORIDE
     Indication: Vancomycin infusion reaction
     Route: 065
  5. PHENYLEPHRINE [Suspect]
     Active Substance: PHENYLEPHRINE HYDROCHLORIDE
     Indication: Hypotension
  6. NOREPINEPHRINE [Suspect]
     Active Substance: NOREPINEPHRINE
     Indication: Vancomycin infusion reaction
     Route: 065
  7. NOREPINEPHRINE [Suspect]
     Active Substance: NOREPINEPHRINE
     Indication: Hypotension
  8. DESFLURANE [Concomitant]
     Active Substance: DESFLURANE
     Indication: Maintenance of anaesthesia
     Route: 065
  9. REMIFENTANIL [Concomitant]
     Active Substance: REMIFENTANIL
     Indication: Maintenance of anaesthesia
     Route: 065

REACTIONS (2)
  - Vancomycin infusion reaction [Recovered/Resolved]
  - Drug ineffective [Unknown]
